FAERS Safety Report 7212247-X (Version None)
Quarter: 2010Q4

REPORT INFORMATION
  Report Type: 
  Country: None (occurrence: None)
  Receive Date: 20101227
  Receipt Date: 20101214
  Transmission Date: 20110411
  Serious: No
  Sender: FDA-Public Use
  Company Number: 2010AM003473

PATIENT
  Age: 50 Year
  Sex: Male

DRUGS (7)
  1. SYMLIN [Suspect]
     Indication: TYPE 2 DIABETES MELLITUS
     Dosage: 45 MCG; ; SC, 15 MCG; ; SC
     Route: 058
     Dates: start: 20100312, end: 20100101
  2. SYMLIN [Suspect]
     Indication: TYPE 2 DIABETES MELLITUS
     Dosage: 45 MCG; ; SC, 15 MCG; ; SC
     Route: 058
     Dates: end: 20101201
  3. PROGRAF [Concomitant]
  4. ESCITALOPRAM [Concomitant]
  5. METOPROLOL [Concomitant]
  6. ACIPHEX [Concomitant]
  7. MULTI-VITAMINS [Concomitant]

REACTIONS (3)
  - ALANINE AMINOTRANSFERASE INCREASED [None]
  - LIVER DISORDER [None]
  - THROMBOSIS [None]
